FAERS Safety Report 9105619 (Version 3)
Quarter: 2013Q2

REPORT INFORMATION
  Report Type: Spontaneous
  Country: US (occurrence: US)
  Receive Date: 20130220
  Receipt Date: 20130415
  Transmission Date: 20140414
  Serious: Yes (Death, Life-Threatening, Hospitalization)
  Sender: FDA-Public Use
  Company Number: US-GILEAD-2013-0070082

PATIENT
  Age: 61 Year
  Sex: Female

DRUGS (4)
  1. LETAIRIS [Suspect]
     Indication: PULMONARY ARTERIAL HYPERTENSION
     Dosage: 5 MG, QD
     Dates: start: 20121007
  2. LETAIRIS [Suspect]
     Indication: CARDIAC FAILURE CONGESTIVE
  3. LETAIRIS [Suspect]
     Indication: SJOGREN^S SYNDROME
  4. LETAIRIS [Suspect]
     Indication: RHEUMATOID ARTHRITIS

REACTIONS (3)
  - Staphylococcal sepsis [Fatal]
  - Endocarditis [Fatal]
  - Respiratory failure [Not Recovered/Not Resolved]
